FAERS Safety Report 7339747-6 (Version None)
Quarter: 2011Q1

REPORT INFORMATION
  Report Type: 
  Country: None (occurrence: None)
  Receive Date: 20110309
  Receipt Date: 20101123
  Transmission Date: 20110831
  Serious: Yes (Hospitalization)
  Sender: FDA-Public Use
  Company Number: US-BAYER-201037941NA

PATIENT
  Sex: Female
  Weight: 99.773 kg

DRUGS (8)
  1. OCELLA [Suspect]
     Indication: CONTRACEPTION
  2. YASMIN [Suspect]
     Indication: CONTRACEPTION
  3. IBUPROFEN [Concomitant]
     Dosage: UNK
     Dates: start: 20040101
  4. YAZ [Suspect]
     Indication: ACNE
  5. YASMIN [Suspect]
     Indication: ACNE
  6. MOTRIN [Concomitant]
     Dosage: UNK
     Dates: start: 20050101
  7. YAZ [Suspect]
     Indication: CONTRACEPTION
  8. OCELLA [Suspect]
     Indication: ACNE

REACTIONS (3)
  - CHOLELITHIASIS [None]
  - PAIN [None]
  - CHOLECYSTITIS CHRONIC [None]
